FAERS Safety Report 18357688 (Version 3)
Quarter: 2021Q4

REPORT INFORMATION
  Report Type: Other
  Country: CA (occurrence: None)
  Receive Date: 20201008
  Receipt Date: 20211105
  Transmission Date: 20220303
  Serious: Yes (Hospitalization, Other)
  Sender: FDA-Public Use
  Company Number: CA-ROCHE-2368367

PATIENT
  Age: 68 Year
  Sex: Female

DRUGS (14)
  1. TOCILIZUMAB [Suspect]
     Active Substance: TOCILIZUMAB
     Indication: Rheumatoid arthritis
     Route: 042
     Dates: start: 20190327
  2. TOCILIZUMAB [Suspect]
     Active Substance: TOCILIZUMAB
     Route: 042
     Dates: start: 20200930
  3. DULOXETINE [Concomitant]
     Active Substance: DULOXETINE
  4. GLICLAZIDE [Concomitant]
     Active Substance: GLICLAZIDE
  5. GLUMETZA [Concomitant]
     Active Substance: METFORMIN HYDROCHLORIDE
  6. METOPROLOL [Concomitant]
     Active Substance: METOPROLOL
  7. PANTOPRAZOLE [Concomitant]
     Active Substance: PANTOPRAZOLE
  8. RAMIPRIL [Concomitant]
     Active Substance: RAMIPRIL
  9. ATORVASTATIN [Concomitant]
     Active Substance: ATORVASTATIN
  10. BUTRANS [Concomitant]
     Active Substance: BUPRENORPHINE
  11. ELIQUIS [Concomitant]
     Active Substance: APIXABAN
  12. INVOKANA [Concomitant]
     Active Substance: CANAGLIFLOZIN
  13. LASIX [Concomitant]
     Active Substance: FUROSEMIDE
  14. PERINDOPRIL [Concomitant]
     Active Substance: PERINDOPRIL

REACTIONS (12)
  - Pneumonia [Unknown]
  - Viral infection [Unknown]
  - Nasopharyngitis [Not Recovered/Not Resolved]
  - Off label use [Unknown]
  - Dyspnoea [Recovering/Resolving]
  - Anxiety [Recovering/Resolving]
  - Cardiac failure [Recovering/Resolving]
  - Atrial fibrillation [Unknown]
  - Cataract [Unknown]
  - Panic reaction [Recovering/Resolving]
  - Blood pressure systolic abnormal [Unknown]
  - Cardiac failure congestive [Unknown]

NARRATIVE: CASE EVENT DATE: 20190717
